FAERS Safety Report 5471388-8 (Version None)
Quarter: 2007Q3

REPORT INFORMATION
  Report Type: 
  Country: None (occurrence: None)
  Receive Date: 20070928
  Receipt Date: 20060920
  Transmission Date: 20080115
  Serious: No
  Sender: FDA-Public Use
  Company Number: US-BRISTOL-MYERS SQUIBB COMPANY-13516034

PATIENT
  Age: 45 Year
  Sex: Male

DRUGS (1)
  1. DEFINITY [Suspect]
     Indication: STRESS ECHOCARDIOGRAM
     Dosage: PERFLUTREN 1 VIAL IN 10CC OF SALINE; RECEIVED 2CC TOTAL
     Dates: start: 20060918

REACTIONS (2)
  - BACK PAIN [None]
  - CHEST PAIN [None]
